FAERS Safety Report 17214777 (Version 1)
Quarter: 2020Q1

REPORT INFORMATION
  Report Type: Spontaneous
  Country: US (occurrence: US)
  Receive Date: 20191229
  Receipt Date: 20191229
  Transmission Date: 20200409
  Serious: Yes (Other)
  Sender: FDA-Public Use
  Company Number: None

PATIENT
  Age: 46 Year
  Sex: Female
  Weight: 49.5 kg

DRUGS (3)
  1. EMGALITY [Suspect]
     Active Substance: GALCANEZUMAB-GNLM
     Indication: MIGRAINE
  2. ORTHO NOVUM [Concomitant]
     Active Substance: MESTRANOL\NORETHINDRONE
  3. IMITREX [Concomitant]
     Active Substance: SUMATRIPTAN SUCCINATE

REACTIONS (7)
  - Menstruation irregular [None]
  - Small intestinal obstruction [None]
  - Fixed bowel loop [None]
  - Abdominal hernia [None]
  - Feeding disorder [None]
  - Abdominal tenderness [None]
  - Weight decreased [None]

NARRATIVE: CASE EVENT DATE: 20190825
